FAERS Safety Report 19007268 (Version 1)
Quarter: 2021Q1

REPORT INFORMATION
  Report Type: Spontaneous
  Country: US (occurrence: US)
  Receive Date: 20210315
  Receipt Date: 20210315
  Transmission Date: 20210420
  Serious: No
  Sender: FDA-Public Use
  Company Number: None

PATIENT
  Sex: Female

DRUGS (2)
  1. IV SCIG 26G 9MM HIGH FLO [Suspect]
     Active Substance: HUMAN IMMUNOGLOBULIN G
     Indication: IMMUNODEFICIENCY COMMON VARIABLE
     Route: 058
     Dates: start: 2017
  2. RMS4?2609 NEEDLE SETS [DEVICE] [Suspect]
     Active Substance: DEVICE

REACTIONS (3)
  - Suspected product quality issue [None]
  - Needle issue [None]
  - Infusion site haemorrhage [None]
